FAERS Safety Report 6999846-5 (Version None)
Quarter: 2010Q3

REPORT INFORMATION
  Report Type: 
  Country: None (occurrence: None)
  Receive Date: 20100920
  Receipt Date: 20070605
  Transmission Date: 20110219
  Serious: No
  Sender: FDA-Public Use
  Company Number: US-ASTRAZENECA-2006UW21971

PATIENT
  Age: 18913 Day
  Sex: Female
  Weight: 110 kg

DRUGS (8)
  1. SEROQUEL [Suspect]
     Indication: DEPRESSION
     Route: 048
     Dates: start: 20040324
  2. SEROQUEL [Suspect]
     Indication: ANXIETY
     Route: 048
     Dates: start: 20040324
  3. LIPITOR [Concomitant]
     Dates: start: 20021126
  4. ACTOS [Concomitant]
     Dates: start: 20030726
  5. HYDROCHLOROTHIAZIDE [Concomitant]
     Dates: start: 20040701
  6. MOBIC [Concomitant]
     Dates: start: 20020720
  7. NEXIUM [Concomitant]
     Dates: start: 20020720
  8. REMERON [Concomitant]
     Dates: start: 20020720

REACTIONS (6)
  - ANXIETY [None]
  - BACK INJURY [None]
  - DEPRESSION [None]
  - DIABETES MELLITUS [None]
  - JOINT INJURY [None]
  - TYPE 2 DIABETES MELLITUS [None]
